FAERS Safety Report 10797525 (Version 1)
Quarter: 2015Q1

REPORT INFORMATION
  Report Type: Spontaneous
  Country: ZA (occurrence: ZA)
  Receive Date: 20150216
  Receipt Date: 20150216
  Transmission Date: 20150721
  Serious: Yes (Death, Hospitalization, Other)
  Sender: FDA-Public Use
  Company Number: ZA-MYLANLABS-2015M1003389

PATIENT

DRUGS (8)
  1. ZOLPIDEM TARTATE [Concomitant]
     Indication: ANTIDEPRESSANT THERAPY
     Dosage: 10 MG, QD
     Route: 065
  2. MYLACAND PLUS [Suspect]
     Active Substance: CANDESARTAN CILEXETIL\HYDROCHLOROTHIAZIDE
     Indication: HYPERTENSION
     Dosage: 16/125 MG QD (SINCE MORE THAN 2 YEARS)
     Route: 065
  3. BRAZEPAM [Concomitant]
     Indication: ANXIETY
     Dosage: 3 MG, QD
  4. TYDAMINE                           /00051801/ [Concomitant]
     Indication: SLEEP DISORDER
     Dosage: 25 MG, QD
  5. DIAGLUCIDE [Concomitant]
     Indication: DIABETES MELLITUS
     Dosage: UNK
     Route: 065
  6. LEVEMIR [Concomitant]
     Active Substance: INSULIN DETEMIR
     Indication: DIABETES MELLITUS
     Dosage: UNK
     Route: 065
  7. LYRICA [Concomitant]
     Active Substance: PREGABALIN
     Indication: NEURALGIA
     Dosage: 150 MG, QD
  8. OMEZ                               /00661201/ [Concomitant]
     Active Substance: OMEPRAZOLE
     Indication: GASTROOESOPHAGEAL REFLUX DISEASE
     Dosage: 10 MG, QD
     Route: 065

REACTIONS (6)
  - Fatigue [Unknown]
  - Condition aggravated [Unknown]
  - Confusional state [Unknown]
  - Hypotension [Unknown]
  - Coma [Unknown]
  - Hepatic failure [Fatal]

NARRATIVE: CASE EVENT DATE: 2014
